FAERS Safety Report 5022244-0 (Version None)
Quarter: 2006Q2

REPORT INFORMATION
  Report Type: 
  Country: None (occurrence: None)
  Receive Date: 20060609
  Receipt Date: 20060407
  Transmission Date: 20061013
  Serious: Yes (Life-Threatening)
  Sender: FDA-Public Use
  Company Number: 2006SE02036

PATIENT
  Age: 28546 Day
  Sex: Male

DRUGS (15)
  1. PROPOFOL [Suspect]
     Indication: SEDATION
     Route: 042
     Dates: start: 20060320, end: 20060324
  2. LIPITOR [Concomitant]
     Route: 048
  3. MAGNESIUMSULFAT BRAUN [Concomitant]
  4. AFIPRAN [Concomitant]
  5. FOLIC ACID [Concomitant]
     Route: 048
  6. NEBCINA [Concomitant]
     Indication: PNEUMONIA BACTERIAL
     Dates: start: 20060320, end: 20060330
  7. DIURAL [Concomitant]
     Dosage: 10 MG/ML
  8. ACTRAPID [Concomitant]
     Dosage: 0,1 IU/ML
     Route: 041
  9. NYCOPLUS FERRO-RETARD [Concomitant]
     Route: 048
  10. METRONIDAZOLE [Concomitant]
     Indication: PNEUMONIA BACTERIAL
     Dates: start: 20060320, end: 20060330
  11. PENTREXYL [Concomitant]
     Indication: PNEUMONIA BACTERIAL
     Dates: start: 20060320, end: 20060402
  12. SELO-ZOK [Concomitant]
     Route: 048
  13. LAKTULOSE [Concomitant]
  14. CAPTOPRIL [Concomitant]
     Dosage: 1+0+1/2+0 (NUMBER OF 50 MG TABLETS TAKEN PER DAY)
     Route: 048
  15. SOMAC [Concomitant]

REACTIONS (2)
  - CARDIAC ARREST [None]
  - TORSADE DE POINTES [None]
